FAERS Safety Report 8128018-6 (Version None)
Quarter: 2012Q1

REPORT INFORMATION
  Report Type: 
  Country: None (occurrence: None)
  Receive Date: 20120210
  Receipt Date: 20120131
  Transmission Date: 20120608
  Serious: Yes (Hospitalization)
  Sender: FDA-Public Use
  Company Number: US-ACTELION-A-NJ2011-57957

PATIENT

DRUGS (7)
  1. FUROSEMIDE [Concomitant]
  2. ALDACTONE [Concomitant]
  3. DIGOXIN [Concomitant]
  4. EPOPROSTENOL SODIUM [Suspect]
     Indication: PULMONARY ARTERIAL HYPERTENSION
     Dosage: 58 NG/KG, PER MIN
     Route: 041
     Dates: start: 20100604
  5. TRACLEER [Suspect]
     Indication: PULMONARY ARTERIAL HYPERTENSION
     Dosage: 125 MG, BID
     Route: 048
     Dates: start: 20090501, end: 20111206
  6. COUMADIN [Concomitant]
  7. SILDENAFIL [Concomitant]

REACTIONS (8)
  - PRESYNCOPE [None]
  - THROMBOSIS IN DEVICE [None]
  - BRADYCARDIA [None]
  - VENTRICULAR TACHYCARDIA [None]
  - PULSE ABSENT [None]
  - CONCOMITANT DISEASE AGGRAVATED [None]
  - UNRESPONSIVE TO STIMULI [None]
  - SYNCOPE [None]
